FAERS Safety Report 5747528-X (Version None)
Quarter: 2008Q2

REPORT INFORMATION
  Report Type: 
  Country: None (occurrence: None)
  Receive Date: 20080523
  Receipt Date: 20080514
  Transmission Date: 20081010
  Serious: Yes (Other)
  Sender: FDA-Public Use
  Company Number: US-ASTRAZENECA-2008UW05668

PATIENT
  Age: 73 Year
  Sex: Female
  Weight: 65.3 kg

DRUGS (10)
  1. CRESTOR [Suspect]
     Indication: HYPERCHOLESTEROLAEMIA
     Route: 048
     Dates: start: 20070801, end: 20080209
  2. CRESTOR [Suspect]
     Dosage: EVERY 2 TO 3 DAYS
     Route: 048
     Dates: start: 20080210
  3. LEVOTHYROXINE SODIUM [Concomitant]
  4. ALLEGRA [Concomitant]
  5. OMEPRAZOLE [Concomitant]
  6. VERAPAMIL [Concomitant]
  7. ASPIRIN [Concomitant]
  8. OMACOR [Concomitant]
  9. WELCHOL [Concomitant]
  10. LACTULOSE [Concomitant]

REACTIONS (7)
  - ARTHRALGIA [None]
  - CARDIAC DISORDER [None]
  - CONSTIPATION [None]
  - DIZZINESS [None]
  - FALL [None]
  - HOT FLUSH [None]
  - NASOPHARYNGITIS [None]
